FAERS Safety Report 9504807 (Version 1)
Quarter: 2013Q1

REPORT INFORMATION
  Report Type: Spontaneous
  Country: US (occurrence: None)
  Receive Date: 20130131
  Receipt Date: 20130131
  Transmission Date: 20140127
  Serious: No
  Sender: FDA-Public Use
  Company Number: DSA_60411_2012

PATIENT
  Age: 82 Year
  Sex: Male
  Weight: 75.03 kg

DRUGS (7)
  1. MACUGEN [Suspect]
     Indication: AGE-RELATED MACULAR DEGENERATION
     Dosage: DF INTRAOCULAR
     Dates: start: 20090224
  2. MACUGEN [Suspect]
     Indication: CHOROIDAL NEOVASCULARISATION
     Dosage: DF INTRAOCULAR
     Dates: start: 20090224
  3. GATIFLO [Concomitant]
  4. POVIDONE IODINE [Concomitant]
  5. MYDRIN P [Concomitant]
  6. BENOXIL [Concomitant]
  7. XYLOCAINE [Concomitant]

REACTIONS (1)
  - Endophthalmitis [None]
